FAERS Safety Report 11661494 (Version 3)
Quarter: 2016Q1

REPORT INFORMATION
  Report Type: Spontaneous
  Country: US (occurrence: US)
  Receive Date: 20151026
  Receipt Date: 20160116
  Transmission Date: 20160525
  Serious: No
  Sender: FDA-Public Use
  Company Number: US-LUNDBECK-DKLU2005110

PATIENT
  Sex: Male

DRUGS (2)
  1. ONFI [Suspect]
     Active Substance: CLOBAZAM
     Indication: GENERALISED TONIC-CLONIC SEIZURE
     Route: 048
     Dates: start: 20150901
  2. ONFI [Suspect]
     Active Substance: CLOBAZAM
     Indication: AUTISM
     Route: 048
     Dates: end: 20150928

REACTIONS (1)
  - Drug ineffective [Unknown]
